FAERS Safety Report 5939866-2 (Version None)
Quarter: 2008Q4

REPORT INFORMATION
  Report Type: 
  Country: None (occurrence: None)
  Receive Date: 20081104
  Receipt Date: 20081027
  Transmission Date: 20090506
  Serious: Yes (Hospitalization)
  Sender: FDA-Public Use
  Company Number: GB-JNJFOC-20080905244

PATIENT
  Age: 15 Year
  Sex: Male

DRUGS (1)
  1. CONCERTA [Suspect]
     Indication: ATTENTION DEFICIT/HYPERACTIVITY DISORDER
     Route: 048

REACTIONS (7)
  - AGGRESSION [None]
  - HYPERHIDROSIS [None]
  - INSOMNIA [None]
  - MUSCLE TWITCHING [None]
  - OVERDOSE [None]
  - PARANOIA [None]
  - VISUAL IMPAIRMENT [None]
